FAERS Safety Report 6486956-4 (Version None)
Quarter: 2009Q4

REPORT INFORMATION
  Report Type: 
  Country: None (occurrence: None)
  Receive Date: 20091210
  Receipt Date: 20091130
  Transmission Date: 20100525
  Serious: Yes (Disabling)
  Sender: FDA-Public Use
  Company Number: PHHY2009TZ52881

PATIENT
  Age: 32 Year
  Sex: Female

DRUGS (2)
  1. CGP 56697 T31707+ [Suspect]
     Indication: MALARIA
     Dosage: 4 TABLETS BID, FOR 3 DAYS IN A WEEK
     Route: 048
     Dates: start: 20090701, end: 20090701
  2. PANADOL [Concomitant]
     Indication: PYREXIA

REACTIONS (5)
  - AMNESIA [None]
  - CONFUSIONAL STATE [None]
  - FATIGUE [None]
  - PRURITUS [None]
  - URTICARIA [None]
